FAERS Safety Report 12950235 (Version 2)
Quarter: 2017Q4

REPORT INFORMATION
  Report Type: Report from Study
  Country: TW (occurrence: TW)
  Receive Date: 20161117
  Receipt Date: 20171130
  Transmission Date: 20180320
  Serious: Yes (Death, Other)
  Sender: FDA-Public Use
  Company Number: TW-PFIZER INC-2016528867

PATIENT
  Age: 57 Year
  Sex: Female

DRUGS (2)
  1. FASLODEX [Concomitant]
     Active Substance: FULVESTRANT
     Indication: BREAST CANCER METASTATIC
     Dosage: 500 MG, EVERY 2 WEEKS IN FIRST MONTH. FOLLOWED BY 500MG EVERY 4 WEEKS
     Route: 042
     Dates: start: 20160915, end: 20161101
  2. PALBOCICLIB [Suspect]
     Active Substance: PALBOCICLIB
     Dosage: 125 MG, CYCLIC (QD, 3 WEEKS ON, 1 WEEK OFF)
     Route: 048
     Dates: start: 20160708, end: 20161119

REACTIONS (3)
  - Hepatic function abnormal [Fatal]
  - Haematemesis [Unknown]
  - Platelet count decreased [Unknown]

NARRATIVE: CASE EVENT DATE: 20161112
